FAERS Safety Report 4317004-X (Version None)
Quarter: 2004Q1

REPORT INFORMATION
  Report Type: 
  Country: None (occurrence: None)
  Receive Date: 20040315
  Receipt Date: 20040226
  Transmission Date: 20041129
  Serious: Yes (Death)
  Sender: FDA-Public Use
  Company Number: EM2004-0060

PATIENT
  Age: 51 Year
  Sex: Female

DRUGS (26)
  1. TOBI [Suspect]
     Indication: BRONCHITIS
     Dosage: 300MG, BID, INHALATION
     Route: 055
     Dates: start: 20040123, end: 20040202
  2. FUROSEMIDE [Concomitant]
  3. CITALOPRAM [Concomitant]
  4. INSULIN, REGULAR (INSULIN) [Concomitant]
  5. ZINC SULFATE (ZINC SULFATE) [Concomitant]
  6. ASCOBRIC ACID (ASCOBRIC ACID) [Concomitant]
  7. LANSOPRAZOLE [Concomitant]
  8. FERROUS SULFATE TAB [Concomitant]
  9. VITAMIN B COMPLEX (CALCIUM PANTOTHENATE, NICOTINAMIDE, RIBOFLAVIN, THI [Concomitant]
  10. ALBUTEROL [Concomitant]
  11. ACETAMINOPHEN [Concomitant]
  12. HYDROCODONE W/ACETAMINOPHEN (HYDROCODONE BITARTRATE, PARCETAMOL) [Concomitant]
  13. WARFARIN SODIUM [Concomitant]
  14. BISACODYL (BISACODYL) [Concomitant]
  15. INSULIN HUMAN (INSULIN HUMAN) [Concomitant]
  16. INSULIN HUMULIN 70/30 (INSULIN HUMUMLIN HUMAN INJECTION, ISOPHANE, INS [Concomitant]
  17. LORAZEPAM [Concomitant]
  18. AMIODARONE HCL [Concomitant]
  19. POTASSIUM CHLORIDE [Concomitant]
  20. ENOXAPARIN SODIUM [Concomitant]
  21. METFORMIN HCL [Concomitant]
  22. LORAZEPAM [Concomitant]
  23. IPRATROPIUM BROMIDE [Concomitant]
  24. ACETYLCYSTEIN (ACETYLCYSTEIN) [Concomitant]
  25. DARBEPOETIN ALPHA [Concomitant]
  26. TOBI [Suspect]

REACTIONS (4)
  - ENDOPHTHALMITIS [None]
  - HYPERGLYCAEMIA [None]
  - SEPSIS [None]
  - THROMBOCYTOPENIA [None]
